FAERS Safety Report 7023153-8 (Version None)
Quarter: 2010Q3

REPORT INFORMATION
  Report Type: 
  Country: None (occurrence: None)
  Receive Date: 20100930
  Receipt Date: 20100922
  Transmission Date: 20110219
  Serious: Yes (Death, Life-Threatening, Hospitalization, Disabling, Other)
  Sender: FDA-Public Use
  Company Number: US-BAXTER-2010BH023105

PATIENT
  Age: 14 Month
  Sex: Female
  Weight: 6 kg

DRUGS (2)
  1. DIANEAL [Suspect]
     Indication: CONGENITAL CYSTIC KIDNEY DISEASE
     Route: 033
     Dates: start: 20090622, end: 20100810
  2. DIANEAL [Suspect]
     Route: 033
     Dates: start: 20100810, end: 20100816

REACTIONS (4)
  - BRADYCARDIA [None]
  - CARDIAC ARREST [None]
  - ENCEPHALOPATHY [None]
  - VOMITING [None]
